FAERS Safety Report 16219089 (Version 4)
Quarter: 2019Q3

REPORT INFORMATION
  Report Type: Spontaneous
  Country: MX (occurrence: MX)
  Receive Date: 20190419
  Receipt Date: 20190830
  Transmission Date: 20191004
  Serious: Yes (Other)
  Sender: FDA-Public Use
  Company Number: MX-ANIPHARMA-2019-MX-000006

PATIENT
  Age: 61 Year
  Sex: Female
  Weight: 79 kg

DRUGS (6)
  1. NEUROBION [Concomitant]
     Active Substance: CYANOCOBALAMIN\PYRIDOXINE\THIAMINE
     Dosage: DAILY
     Route: 048
     Dates: start: 201812
  2. NEURALIN [DEXAMETHASONE] [Interacting]
     Active Substance: DEXAMETHASONE
     Dosage: 1 APPLICATION EVERY 24 HOURS
     Route: 030
     Dates: start: 201812
  3. NO MATCH [Concomitant]
     Active Substance: UNSPECIFIED INGREDIENT
     Dosage: DAILY
     Route: 048
     Dates: start: 2018
  4. ATACAND [Suspect]
     Active Substance: CANDESARTAN CILEXETIL
     Indication: HYPERTENSION
     Dosage: 16 MG QD
     Route: 048
     Dates: start: 201707
  5. PRAVASTATIN. [Concomitant]
     Active Substance: PRAVASTATIN
     Dosage: DAILY
     Route: 048
     Dates: start: 201809
  6. NO MATCH [Concomitant]
     Active Substance: UNSPECIFIED INGREDIENT
     Dosage: DAILY
     Route: 048
     Dates: start: 2017

REACTIONS (11)
  - Nausea [Unknown]
  - Hyperhidrosis [Recovered/Resolved]
  - Intervertebral disc protrusion [Unknown]
  - Dizziness [Recovered/Resolved]
  - Hepatic steatosis [Unknown]
  - Headache [Recovered/Resolved]
  - Weight decreased [Not Recovered/Not Resolved]
  - Drug interaction [Not Recovered/Not Resolved]
  - Malaise [Recovered/Resolved]
  - Dysgeusia [Recovered/Resolved]
  - Blood glucose increased [Recovered/Resolved]

NARRATIVE: CASE EVENT DATE: 201712
